FAERS Safety Report 6443371-7 (Version None)
Quarter: 2009Q4

REPORT INFORMATION
  Report Type: 
  Country: None (occurrence: None)
  Receive Date: 20091117
  Receipt Date: 20091105
  Transmission Date: 20100525
  Serious: Yes (Other)
  Sender: FDA-Public Use
  Company Number: DE-BRISTOL-MYERS SQUIBB COMPANY-14842645

PATIENT
  Age: 6 Decade
  Sex: Male

DRUGS (3)
  1. ONGLYZA TABS [Suspect]
     Dosage: TAKEN IN THE MORNING
  2. KARVEA [Suspect]
     Dosage: FOR 7-8 YRS
     Route: 048
  3. GLIMEPIRIDE [Suspect]

REACTIONS (3)
  - BLOOD GLUCOSE INCREASED [None]
  - CARDIAC FAILURE [None]
  - HYPOGLYCAEMIA [None]
